FAERS Safety Report 7760859-7 (Version None)
Quarter: 2011Q3

REPORT INFORMATION
  Report Type: 
  Country: None (occurrence: None)
  Receive Date: 20110919
  Receipt Date: 20110912
  Transmission Date: 20111222
  Serious: Yes (Other)
  Sender: FDA-Public Use
  Company Number: DE-AMGEN-DEUSP2011043910

PATIENT
  Age: 72 Year
  Sex: Female
  Weight: 69 kg

DRUGS (4)
  1. TRAMADOL HYDROCHLORIDE [Concomitant]
     Indication: PAIN
     Dosage: UNK
     Route: 048
     Dates: start: 20110601
  2. PROLIA [Suspect]
     Indication: OSTEOPOROSIS
     Dosage: 60 MG, UNK
     Dates: start: 20110817
  3. CALCICARE [Concomitant]
     Indication: OSTEOPOROSIS
     Dosage: UNK
     Route: 048
     Dates: start: 20030101
  4. NOVAMINSULFON [Concomitant]
     Indication: PAIN
     Route: 048

REACTIONS (3)
  - PHARYNGITIS [None]
  - SCIATICA [None]
  - PARAESTHESIA ORAL [None]
